FAERS Safety Report 6021766-3 (Version None)
Quarter: 2008Q4

REPORT INFORMATION
  Report Type: 
  Country: None (occurrence: None)
  Receive Date: 20081229
  Receipt Date: 20081223
  Transmission Date: 20090506
  Serious: Yes (Hospitalization)
  Sender: FDA-Public Use
  Company Number: US-JNJFOC-20081004871

PATIENT
  Sex: Female
  Weight: 86.18 kg

DRUGS (12)
  1. PALIPERIDONE [Suspect]
     Indication: BIPOLAR DISORDER
     Route: 048
  2. ZOLPIDEM [Suspect]
     Indication: INSOMNIA
     Route: 048
  3. FUROSEMIDE [Concomitant]
  4. HEPARIN [Concomitant]
     Route: 058
  5. GLARGINE [Concomitant]
     Route: 058
  6. SIMVASTATIN [Concomitant]
     Route: 048
  7. NOVOLOG [Concomitant]
  8. ASPIRIN [Concomitant]
  9. OMEPRAZOLE [Concomitant]
  10. ACARBOSE [Concomitant]
  11. LABETALOL [Concomitant]
  12. ENALAPRIL MALEATE [Concomitant]

REACTIONS (1)
  - CONVULSION [None]
